FAERS Safety Report 13039481 (Version 1)
Quarter: 2016Q4

REPORT INFORMATION
  Report Type: Report from Study
  Country: DE (occurrence: DE)
  Receive Date: 20161219
  Receipt Date: 20161219
  Transmission Date: 20170207
  Serious: Yes (Other)
  Sender: FDA-Public Use
  Company Number: DE-TEVA-719878GER

PATIENT
  Age: 70 Year
  Sex: Female

DRUGS (3)
  1. VALERIAN ROOT [Suspect]
     Active Substance: VALERIAN
     Route: 065
  2. METFORMIN [Suspect]
     Active Substance: METFORMIN HYDROCHLORIDE
     Route: 065
  3. PAROXETINE. [Suspect]
     Active Substance: PAROXETINE
     Route: 065

REACTIONS (1)
  - Drug-induced liver injury [Recovering/Resolving]
